FAERS Safety Report 15614958 (Version 1)
Quarter: 2018Q4

REPORT INFORMATION
  Report Type: Report from Study
  Country: None (occurrence: US)
  Receive Date: 20181114
  Receipt Date: 20181114
  Transmission Date: 20190205
  Serious: Yes (Hospitalization)
  Sender: FDA-Public Use
  Company Number: US-ABBVIE-18K-163-2550826-00

PATIENT
  Sex: Female

DRUGS (2)
  1. HUMIRA [Suspect]
     Active Substance: ADALIMUMAB
     Indication: SENILE OSTEOPOROSIS
     Route: 058
     Dates: start: 201712
  2. HUMIRA [Suspect]
     Active Substance: ADALIMUMAB
     Indication: RHEUMATOID ARTHRITIS

REACTIONS (5)
  - Hypophagia [Unknown]
  - Lung disorder [Unknown]
  - Weight decreased [Unknown]
  - Fluid intake reduced [Unknown]
  - Injection site pain [Unknown]
